FAERS Safety Report 8214569-2 (Version None)
Quarter: 2012Q1

REPORT INFORMATION
  Report Type: 
  Country: None (occurrence: None)
  Receive Date: 20120316
  Receipt Date: 20120308
  Transmission Date: 20120608
  Serious: Yes (Hospitalization)
  Sender: FDA-Public Use
  Company Number: US-JNJFOC-20120306331

PATIENT
  Sex: Female
  Weight: 72.58 kg

DRUGS (3)
  1. DURAGESIC-100 [Suspect]
     Route: 062
     Dates: start: 20120101
  2. FENTANYL-100 [Suspect]
     Indication: PAIN
     Route: 062
  3. DURAGESIC-100 [Suspect]
     Indication: PAIN
     Route: 062

REACTIONS (11)
  - URINARY TRACT INFECTION [None]
  - CATARACT [None]
  - MACULAR DEGENERATION [None]
  - EMOTIONAL DISTRESS [None]
  - EYE HAEMORRHAGE [None]
  - DRUG INEFFECTIVE [None]
  - GASTRIC PERFORATION [None]
  - OBSTRUCTION [None]
  - CHEST PAIN [None]
  - VISUAL IMPAIRMENT [None]
  - UMBILICAL HERNIA [None]
